FAERS Safety Report 8958534 (Version 1)
Quarter: 2012Q4

REPORT INFORMATION
  Report Type: Spontaneous
  Country: US (occurrence: None)
  Receive Date: 20121205
  Receipt Date: 20121205
  Transmission Date: 20130627
  Serious: Yes (Other)
  Sender: FDA-Public Use
  Company Number: None

PATIENT
  Age: 62 Year
  Sex: Male
  Weight: 129.28 kg

DRUGS (2)
  1. CYMBALTA [Suspect]
     Indication: LOW BACK PAIN
     Dates: start: 201210, end: 201211
  2. CYMBALTA [Suspect]
     Indication: DEPRESSION
     Dates: start: 201210, end: 201211

REACTIONS (4)
  - Dizziness [None]
  - Back disorder [None]
  - Muscular weakness [None]
  - Dyspnoea [None]
